FAERS Safety Report 22620268 (Version 1)
Quarter: 2023Q2

REPORT INFORMATION
  Report Type: Spontaneous
  Country: US (occurrence: None)
  Receive Date: 20230620
  Receipt Date: 20230620
  Transmission Date: 20230722
  Serious: Yes (Hospitalization)
  Sender: FDA-Public Use
  Company Number: 2023A137628

PATIENT
  Sex: Female

DRUGS (1)
  1. SAPHNELO [Suspect]
     Active Substance: ANIFROLUMAB-FNIA
     Route: 042
     Dates: start: 202110

REACTIONS (12)
  - Thrombosis [Unknown]
  - COVID-19 [Unknown]
  - Nausea [Unknown]
  - Viral infection [Unknown]
  - Product dose omission issue [Unknown]
  - Asthenia [Unknown]
  - Fatigue [Unknown]
  - Illness [Unknown]
  - Therapeutic response shortened [Unknown]
  - Rash [Unknown]
  - Arthralgia [Unknown]
  - Arthritis [Unknown]
